FAERS Safety Report 7601549-0 (Version None)
Quarter: 2011Q3

REPORT INFORMATION
  Report Type: 
  Country: None (occurrence: None)
  Receive Date: 20110711
  Receipt Date: 20110701
  Transmission Date: 20111222
  Serious: Yes (Hospitalization)
  Sender: FDA-Public Use
  Company Number: US-ELI_LILLY_AND_COMPANY-US201107001702

PATIENT
  Sex: Female

DRUGS (7)
  1. HUMALOG [Suspect]
     Dosage: UNK, QID
     Route: 065
     Dates: start: 20050101
  2. HUMALOG [Suspect]
     Dosage: UNK, QID
     Route: 065
     Dates: start: 20050101
  3. LANTUS [Concomitant]
     Dosage: 50 U, BID
  4. HUMALOG [Suspect]
     Dosage: UNK, QID
     Route: 065
     Dates: start: 20050101
  5. HUMALOG [Suspect]
     Dosage: UNK UNK, QID
     Route: 065
     Dates: start: 20040101, end: 20050101
  6. HUMALOG [Suspect]
     Dosage: UNK UNK, QID
     Route: 065
     Dates: start: 20110624
  7. HUMALOG [Suspect]
     Indication: TYPE 2 DIABETES MELLITUS
     Dosage: UNK, QID
     Route: 065
     Dates: start: 20050101

REACTIONS (2)
  - ASTHENIA [None]
  - FOOT OPERATION [None]
